FAERS Safety Report 9109628 (Version 1)
Quarter: 2013Q1

REPORT INFORMATION
  Report Type: Spontaneous
  Country: IT (occurrence: IT)
  Receive Date: 20130222
  Receipt Date: 20130222
  Transmission Date: 20140127
  Serious: Yes (Hospitalization)
  Sender: FDA-Public Use
  Company Number: IT-BRISTOL-MYERS SQUIBB COMPANY-17390683

PATIENT
  Age: 91 Year
  Sex: Female

DRUGS (3)
  1. COUMADIN TABS 5 MG [Suspect]
     Indication: THROMBOSIS PROPHYLAXIS
     Route: 048
     Dates: start: 20120101, end: 20121228
  2. LANOXIN [Suspect]
     Indication: AORTIC VALVE DISEASE
     Dosage: TABS
     Route: 048
     Dates: start: 20120101, end: 20121228
  3. OMEPRAZOLE [Concomitant]
     Route: 048
     Dates: start: 20120101, end: 20121228

REACTIONS (2)
  - Cachexia [Recovered/Resolved]
  - Haematuria [Recovered/Resolved]
